FAERS Safety Report 9128500 (Version 1)
Quarter: 2013Q1

REPORT INFORMATION
  Report Type: Spontaneous
  Country: US (occurrence: US)
  Receive Date: 20130228
  Receipt Date: 20130228
  Transmission Date: 20140127
  Serious: No
  Sender: FDA-Public Use
  Company Number: US-GLAXOSMITHKLINE-A0998576A

PATIENT
  Sex: Female

DRUGS (3)
  1. SUMATRIPTAN SUCCINATE [Suspect]
     Indication: MIGRAINE
     Dosage: 6MG AS REQUIRED
     Route: 058
  2. SUMATRIPTAN SUCCINATE [Suspect]
     Indication: MIGRAINE
     Route: 045
  3. DEVICE [Suspect]
     Indication: MIGRAINE

REACTIONS (5)
  - Injection site pain [Unknown]
  - Drug ineffective [Unknown]
  - Product quality issue [Unknown]
  - Needle issue [Unknown]
  - Injection site haemorrhage [Unknown]
